FAERS Safety Report 7694466-1 (Version None)
Quarter: 2011Q3

REPORT INFORMATION
  Report Type: 
  Country: None (occurrence: None)
  Receive Date: 20110819
  Receipt Date: 20110810
  Transmission Date: 20111222
  Serious: Yes (Other)
  Sender: FDA-Public Use
  Company Number: PHEH2011US01155

PATIENT
  Sex: Female

DRUGS (2)
  1. ZOMETA [Suspect]
  2. LOVENOX [Concomitant]

REACTIONS (1)
  - OSTEONECROSIS [None]
